FAERS Safety Report 16317085 (Version 2)
Quarter: 2019Q3

REPORT INFORMATION
  Report Type: Spontaneous
  Country: US (occurrence: US)
  Receive Date: 20190515
  Receipt Date: 20190703
  Transmission Date: 20191004
  Serious: No
  Sender: FDA-Public Use
  Company Number: US-SA-2019SA131887

PATIENT
  Sex: Female

DRUGS (2)
  1. DUPIXENT [Suspect]
     Active Substance: DUPILUMAB
     Dosage: 200 MG, QOW
     Route: 058
     Dates: start: 20190415
  2. DUPIXENT [Suspect]
     Active Substance: DUPILUMAB
     Indication: ASTHMA
     Dosage: 400 MG, 1X
     Route: 058

REACTIONS (7)
  - Blood pressure abnormal [Unknown]
  - Drug ineffective [Unknown]
  - Headache [Unknown]
  - Malaise [Recovered/Resolved]
  - Nausea [Unknown]
  - Dizziness [Unknown]
  - Vomiting [Unknown]
